FAERS Safety Report 8250240-9 (Version None)
Quarter: 2012Q1

REPORT INFORMATION
  Report Type: 
  Country: None (occurrence: None)
  Receive Date: 20120328
  Receipt Date: 20120313
  Transmission Date: 20120608
  Serious: Yes (Death)
  Sender: FDA-Public Use
  Company Number: FK201200817

PATIENT
  Age: 75 Year
  Sex: Male
  Weight: 80 kg

DRUGS (11)
  1. DICLOFENAC SODIUM [Concomitant]
  2. FLUTICASONE (FLUTICASONE) (FLUTICASONE) [Concomitant]
  3. PREDNISOLONE [Concomitant]
  4. PARACETAMOL (PARACETAMOL) (PARACETAMOL) [Concomitant]
  5. SIMVASTATIN [Concomitant]
  6. LEFLUNOMIDE [Suspect]
     Indication: RHEUMATOID ARTHRITIS
     Dosage: 10 MG, 2 IN 1 D, ORAL
     Route: 048
  7. TRAMADOL HCL [Concomitant]
  8. FOLIC ACID [Concomitant]
  9. LANSOPRAZOLE [Concomitant]
  10. METHOTREXATE [Suspect]
     Indication: RHEUMATOID ARTHRITIS
     Dosage: 7.5 MG, 1 IN 1 D, SUBCUTANEOUS
     Route: 058
     Dates: start: 20111206, end: 20120227
  11. QUININE (QUININE) (QUININE) [Concomitant]

REACTIONS (4)
  - DYSPNOEA [None]
  - PNEUMONIA [None]
  - PNEUMONITIS [None]
  - GENERAL PHYSICAL HEALTH DETERIORATION [None]
